FAERS Safety Report 9535367 (Version 1)
Quarter: 2013Q3

REPORT INFORMATION
  Report Type: Spontaneous
  Country: US (occurrence: US)
  Receive Date: 20130918
  Receipt Date: 20130918
  Transmission Date: 20140515
  Serious: Yes (Other)
  Sender: FDA-Public Use
  Company Number: US-FRI-1000048719

PATIENT
  Sex: Female

DRUGS (1)
  1. SAVELLA [Suspect]

REACTIONS (5)
  - Renal impairment [Unknown]
  - Micturition disorder [Unknown]
  - Hypersensitivity [Unknown]
  - Pruritus generalised [Unknown]
  - Drug withdrawal syndrome [Unknown]
